FAERS Safety Report 7984471-X (Version None)
Quarter: 2011Q4

REPORT INFORMATION
  Report Type: 
  Country: None (occurrence: None)
  Receive Date: 20111216
  Receipt Date: 20111214
  Transmission Date: 20120403
  Serious: Yes (Death)
  Sender: FDA-Public Use
  Company Number: CA-B.I. PHARMACEUTICALS,INC./RIDGEFIELD-2011-CN-01959CN

PATIENT

DRUGS (9)
  1. MIRAPEX [Suspect]
     Indication: PARKINSON'S DISEASE
     Dates: start: 19980101, end: 20070420
  2. QUININE SULFATE [Concomitant]
  3. EXELON [Concomitant]
  4. LIPITOR [Concomitant]
  5. EXELON [Concomitant]
  6. REQUIP [Concomitant]
  7. SINEMET CR [Concomitant]
  8. CELEXA [Concomitant]
  9. NOVASEN [Concomitant]

REACTIONS (4)
  - DEATH [None]
  - BANKRUPTCY [None]
  - PARTNER STRESS [None]
  - GAMBLING [None]
